FAERS Safety Report 19137577 (Version 1)
Quarter: 2021Q2

REPORT INFORMATION
  Report Type: Spontaneous
  Country: GB (occurrence: GB)
  Receive Date: 20210415
  Receipt Date: 20210415
  Transmission Date: 20210717
  Serious: Yes (Other)
  Sender: FDA-Public Use
  Company Number: GB-AMGEN-GBRNI2021055302

PATIENT
  Age: 60 Year
  Sex: Female

DRUGS (8)
  1. DENOSUMAB [Concomitant]
     Active Substance: DENOSUMAB
     Dosage: 120 MILLIGRAM, Q3WK
     Route: 058
     Dates: start: 20161129
  2. TRASTUZUMAB EMTANSINE [Suspect]
     Active Substance: ADO-TRASTUZUMAB EMTANSINE
     Indication: BREAST CANCER METASTATIC
     Dosage: 260 MILLIGRAM, Q3WK (ON 18/SEP/2018, DOSE OF  TRASTUZUMAB EMTANSINE WAS REDUCED TO 200 MG)
     Route: 042
     Dates: start: 20171127
  3. TAXOTERE [Suspect]
     Active Substance: DOCETAXEL
     Indication: BREAST CANCER METASTATIC
     Dosage: 140 MILLIGRAM, Q3WK (ON 28/FEB/2017, DOSE WAS REDUCED TO 96 MG)
     Route: 042
     Dates: start: 20161130
  4. TAZOCIN [Concomitant]
     Active Substance: PIPERACILLIN SODIUM\TAZOBACTAM SODIUM
     Dosage: 4.5 GRAM
     Route: 042
     Dates: start: 20170211
  5. PERTUZUMAB. [Suspect]
     Active Substance: PERTUZUMAB
     Indication: BREAST CANCER METASTATIC
     Dosage: 588 MILLIGRAM, Q3WK (ON 20/DEC/2016, DOSE WAS REDUCED TO PERTUZUMAB (420 MG))
     Route: 042
     Dates: start: 20161129, end: 20161129
  6. OMEPRAZOLE. [Concomitant]
     Active Substance: OMEPRAZOLE
     Dosage: 40 MILLIGRAM, QD
     Route: 048
     Dates: start: 20170207
  7. TRASTUZUMAB. [Suspect]
     Active Substance: TRASTUZUMAB
     Indication: BREAST CANCER METASTATIC
     Dosage: 588 MILLIGRAM, Q3WK (ON 20/DEC/2016, DOSE OF TRASTUZUMAB WAS REDUCED TO 420 MG)
     Route: 041
     Dates: start: 20161129
  8. ADCAL D3 [Concomitant]
     Active Substance: CALCIUM CARBONATE\CHOLECALCIFEROL
     Dosage: 1.5 GRAM, QD
     Route: 048

REACTIONS (2)
  - Hyperbilirubinaemia [Not Recovered/Not Resolved]
  - Off label use [Unknown]

NARRATIVE: CASE EVENT DATE: 20200218
